FAERS Safety Report 4531394-4 (Version None)
Quarter: 2004Q4

REPORT INFORMATION
  Report Type: 
  Country: None (occurrence: None)
  Receive Date: 20041216
  Receipt Date: 20041130
  Transmission Date: 20050328
  Serious: Yes (Hospitalization, Other)
  Sender: FDA-Public Use
  Company Number: US_0411108654

PATIENT
  Age: 84 Year
  Sex: Male
  Weight: 72 kg

DRUGS (2)
  1. HUMALOG [Suspect]
     Indication: DIABETES MELLITUS
     Dosage: 30 U DAY
     Dates: start: 20031201, end: 20041112
  2. HUMALOG [Suspect]
     Indication: DIABETES MELLITUS
     Dates: start: 20030501

REACTIONS (4)
  - CEREBROVASCULAR ACCIDENT [None]
  - DIABETIC COMA [None]
  - RENAL FAILURE [None]
  - URINARY INCONTINENCE [None]
